FAERS Safety Report 9911548 (Version 1)
Quarter: 2014Q1

REPORT INFORMATION
  Report Type: Spontaneous
  Country: US (occurrence: US)
  Receive Date: 20140219
  Receipt Date: 20140219
  Transmission Date: 20141002
  Serious: Yes (Other)
  Sender: FDA-Public Use
  Company Number: PHHY2014US016291

PATIENT
  Age: 54 Year
  Sex: Male

DRUGS (3)
  1. 5-FLUOROURACIL [Suspect]
     Indication: NEOPLASM RECURRENCE
     Dosage: 975 MG, Q12H
     Route: 042
  2. 5-FLUOROURACIL [Suspect]
     Dosage: 950 MG, UNK
     Route: 042
  3. CIS-PLATINUM [Concomitant]
     Indication: NEOPLASM RECURRENCE
     Dosage: 195 MG, UNK

REACTIONS (9)
  - Systemic lupus erythematosus [Unknown]
  - Rash erythematous [Unknown]
  - Erythema [Unknown]
  - Exfoliative rash [Unknown]
  - Skin lesion [Recovered/Resolved]
  - Rash [Unknown]
  - Phlebitis [Unknown]
  - Seborrhoeic dermatitis [Unknown]
  - Oedema [Unknown]
